FAERS Safety Report 20194782 (Version 1)
Quarter: 2021Q4

REPORT INFORMATION
  Report Type: Spontaneous
  Country: US (occurrence: None)
  Receive Date: 20211216
  Receipt Date: 20211216
  Transmission Date: 20220303
  Serious: Yes (Life-Threatening, Other)
  Sender: FDA-Public Use
  Company Number: None

PATIENT
  Age: 89 Year
  Sex: Female
  Weight: 85.4 kg

DRUGS (4)
  1. BARICITINIB [Suspect]
     Active Substance: BARICITINIB
     Indication: COVID-19
     Dosage: FREQUENCY : DAILY;?
     Route: 048
     Dates: start: 20211212, end: 20211215
  2. REMDESIVIR [Concomitant]
     Active Substance: REMDESIVIR
     Dates: start: 20211212, end: 20211215
  3. CASIRIVIMAB\IMDEVIMAB [Concomitant]
     Active Substance: CASIRIVIMAB\IMDEVIMAB
     Dates: start: 20211212, end: 20211212
  4. DEXAMETHASONE [Concomitant]
     Active Substance: DEXAMETHASONE
     Dates: start: 20211212

REACTIONS (4)
  - Oxygen consumption increased [None]
  - Acute kidney injury [None]
  - Diarrhoea [None]
  - Blood creatinine increased [None]

NARRATIVE: CASE EVENT DATE: 20211215
